FAERS Safety Report 5682343-7 (Version None)
Quarter: 2008Q1

REPORT INFORMATION
  Report Type: 
  Country: None (occurrence: None)
  Receive Date: 20080327
  Receipt Date: 20080317
  Transmission Date: 20080703
  Serious: Yes (Other)
  Sender: FDA-Public Use
  Company Number: US-JNJFOC-20080304953

PATIENT
  Sex: Female
  Weight: 68.04 kg

DRUGS (7)
  1. DURAGESIC-100 [Suspect]
     Indication: BACK PAIN
     Route: 062
  2. LORAZEPAM [Concomitant]
     Indication: ANXIETY
     Route: 048
  3. METOPROLOL TARTRATE [Concomitant]
     Indication: BLOOD PRESSURE
     Route: 048
  4. PROMETHAZINE [Concomitant]
     Indication: VOMITING
     Route: 048
  5. PROMETHAZINE [Concomitant]
     Indication: NAUSEA
     Route: 048
  6. PROMETHAZINE [Concomitant]
     Route: 054
  7. PROMETHAZINE [Concomitant]
     Route: 054

REACTIONS (7)
  - DEPRESSED MOOD [None]
  - DIABETES MELLITUS [None]
  - GASTRIC ULCER [None]
  - INSOMNIA [None]
  - NERVOUSNESS [None]
  - PARKINSON'S DISEASE [None]
  - WRONG TECHNIQUE IN DRUG USAGE PROCESS [None]
